FAERS Safety Report 22774129 (Version 2)
Quarter: 2023Q4

REPORT INFORMATION
  Report Type: Report from Study
  Country: CN (occurrence: CN)
  Receive Date: 20230801
  Receipt Date: 20231114
  Transmission Date: 20240110
  Serious: Yes (Other)
  Sender: FDA-Public Use
  Company Number: CN-TAKEDA-2022TUS100885

PATIENT
  Age: 66 Year
  Sex: Male
  Weight: 65 kg

DRUGS (18)
  1. BRENTUXIMAB VEDOTIN [Suspect]
     Active Substance: BRENTUXIMAB VEDOTIN
     Indication: Angioimmunoblastic T-cell lymphoma
     Dosage: 100 MILLIGRAM, Q3WEEKS
     Route: 041
     Dates: start: 20220908
  2. CYCLOPHOSPHAMIDE [Suspect]
     Active Substance: CYCLOPHOSPHAMIDE
     Indication: Lymphoma
     Dosage: 1 GRAM, QD
     Route: 042
     Dates: start: 20220909, end: 20220909
  3. CYCLOPHOSPHAMIDE [Suspect]
     Active Substance: CYCLOPHOSPHAMIDE
     Dosage: 1 GRAM, QD
     Route: 042
     Dates: start: 20221119, end: 20221119
  4. DOXORUBICIN [Suspect]
     Active Substance: DOXORUBICIN
     Indication: Lymphoma
     Dosage: 40 MILLIGRAM, QD
     Route: 042
     Dates: start: 20220909, end: 20220909
  5. DOXORUBICIN [Suspect]
     Active Substance: DOXORUBICIN
     Dosage: 40 MILLIGRAM, QD
     Route: 042
     Dates: start: 20221119, end: 20221119
  6. PREDNISONE [Suspect]
     Active Substance: PREDNISONE
     Indication: Lymphoma
     Dosage: 40 MILLIGRAM, QD
     Route: 048
     Dates: start: 20220909, end: 20220913
  7. PREDNISONE [Suspect]
     Active Substance: PREDNISONE
     Dosage: 30 MILLIGRAM, BID
     Route: 048
     Dates: start: 20220909, end: 20220913
  8. PREDNISONE [Suspect]
     Active Substance: PREDNISONE
     Dosage: 40 MILLIGRAM, QD
     Route: 048
     Dates: start: 20221119, end: 20221123
  9. PREDNISONE [Suspect]
     Active Substance: PREDNISONE
     Dosage: 30 MILLIGRAM, BID
     Route: 048
     Dates: start: 20221119, end: 20221123
  10. LEVOTHYROXINE SODIUM [Concomitant]
     Active Substance: LEVOTHYROXINE SODIUM
     Indication: Hypothyroidism
     Dosage: 87.5 MICROGRAM, QD
     Route: 048
     Dates: start: 2016
  11. SODIUM BICARBONATE [Concomitant]
     Active Substance: SODIUM BICARBONATE
     Indication: Acidosis
     Dosage: 40 MILLILITER, QD
     Route: 042
     Dates: start: 20220908, end: 20220910
  12. DEXAMETHASONE SODIUM PHOSPHATE [Concomitant]
     Active Substance: DEXAMETHASONE SODIUM PHOSPHATE
     Indication: Hypersensitivity
     Dosage: 5 MILLIGRAM, QD
     Route: 042
     Dates: start: 20220908, end: 20220909
  13. DIPHENHYDRAMINE HYDROCHLORIDE [Concomitant]
     Active Substance: DIPHENHYDRAMINE HYDROCHLORIDE
     Indication: Hypersensitivity
     Dosage: 20 MILLIGRAM, QD
     Route: 030
     Dates: start: 20220908, end: 20220909
  14. FOSAPREPITANT DIMEGLUMINE [Concomitant]
     Active Substance: FOSAPREPITANT DIMEGLUMINE
     Indication: Antiemetic supportive care
     Dosage: 0.15 GRAM, QD
     Route: 042
     Dates: start: 20220908, end: 20220908
  15. HEPARIN SODIUM [Concomitant]
     Active Substance: HEPARIN SODIUM
     Indication: Varicose vein
     Dosage: 2 MILLILITER, QD
     Route: 042
     Dates: start: 20220908, end: 20220908
  16. ONDANSETRON HYDROCHLORIDE [Concomitant]
     Active Substance: ONDANSETRON HYDROCHLORIDE
     Indication: Antiemetic supportive care
     Dosage: 8 MILLIGRAM, QD
     Route: 042
     Dates: start: 20220909, end: 20220909
  17. MESNA [Concomitant]
     Active Substance: MESNA
     Indication: Chemotherapy
     Dosage: 0.8 GRAM, QD
     Route: 042
     Dates: start: 20220909, end: 20220909
  18. FAMOTIDINE [Concomitant]
     Active Substance: FAMOTIDINE
     Indication: Hormone level abnormal
     Dosage: 20 MILLIGRAM, BID
     Route: 042
     Dates: start: 20220909, end: 20220910

REACTIONS (10)
  - Agranulocytosis [Recovered/Resolved]
  - Pneumonitis [Recovered/Resolved]
  - Immunoglobulins decreased [Recovered/Resolved]
  - Beta 2 microglobulin increased [Unknown]
  - Lymphocyte count decreased [Unknown]
  - COVID-19 [Recovered/Resolved]
  - Eczema [Recovered/Resolved]
  - Pruritus [Recovered/Resolved]
  - Anaemia [Recovered/Resolved]
  - Off label use [Unknown]

NARRATIVE: CASE EVENT DATE: 20220908
